FAERS Safety Report 17604701 (Version 2)
Quarter: 2020Q2

REPORT INFORMATION
  Report Type: Spontaneous
  Country: US (occurrence: US)
  Receive Date: 20200331
  Receipt Date: 20200629
  Transmission Date: 20200713
  Serious: No
  Sender: FDA-Public Use
  Company Number: US-VERTEX PHARMACEUTICALS-2020-006854

PATIENT
  Age: 12 Year
  Sex: Male

DRUGS (10)
  1. ALBUTEROL [SALBUTAMOL] [Concomitant]
     Active Substance: ALBUTEROL
  2. SINGULAIR [Concomitant]
     Active Substance: MONTELUKAST SODIUM
  3. CREON [Concomitant]
     Active Substance: PANCRELIPASE AMYLASE\PANCRELIPASE LIPASE\PANCRELIPASE PROTEASE
  4. ZOSYN [Concomitant]
     Active Substance: PIPERACILLIN SODIUM\TAZOBACTAM SODIUM
  5. CAYSTON [Concomitant]
     Active Substance: AZTREONAM
  6. PREVACID [Concomitant]
     Active Substance: LANSOPRAZOLE
  7. CEFEPIME [Concomitant]
     Active Substance: CEFEPIME HYDROCHLORIDE
  8. SODIUM CHLORIDE. [Concomitant]
     Active Substance: SODIUM CHLORIDE
  9. PULMOZYME [Concomitant]
     Active Substance: DORNASE ALFA
  10. TRIKAFTA [Suspect]
     Active Substance: ELEXACAFTOR\IVACAFTOR\TEZACAFTOR
     Indication: CYSTIC FIBROSIS
     Dosage: 2 ORANGE TABLETS IN THE MORNING ; 1 BLUE TABLET IN TH EVENING
     Route: 048
     Dates: start: 20200228

REACTIONS (1)
  - Nasal congestion [Recovered/Resolved]

NARRATIVE: CASE EVENT DATE: 20200228
